FAERS Safety Report 9931737 (Version 1)
Quarter: 2014Q1

REPORT INFORMATION
  Report Type: Spontaneous
  Country: US (occurrence: None)
  Receive Date: 20140227
  Receipt Date: 20140227
  Transmission Date: 20141002
  Serious: Yes (Disabling)
  Sender: FDA-Public Use
  Company Number: None

PATIENT
  Age: 61 Year
  Sex: Female
  Weight: 104.33 kg

DRUGS (1)
  1. AVELOX, 400 MG, SCHERING CORP [Suspect]
     Indication: SINUSITIS
     Dosage: 1 PILL ONCE DAILY
     Route: 048
     Dates: start: 20140220, end: 20140222

REACTIONS (4)
  - Agitation [None]
  - Muscular weakness [None]
  - Tendonitis [None]
  - Arthralgia [None]
